FAERS Safety Report 24035112 (Version 1)
Quarter: 2024Q2

REPORT INFORMATION
  Report Type: Spontaneous
  Country: US (occurrence: None)
  Receive Date: 20240628
  Receipt Date: 20240628
  Transmission Date: 20240716
  Serious: Yes (Other)
  Sender: FDA-Public Use
  Company Number: None

PATIENT
  Age: 63 Year
  Sex: Female

DRUGS (1)
  1. STELARA [Suspect]
     Active Substance: USTEKINUMAB
     Indication: Psoriasis
     Dosage: 1 SYRINGE EVERY 12 WEEKS SUBCUTANEOUS
     Route: 058

REACTIONS (5)
  - Influenza like illness [None]
  - Headache [None]
  - Chills [None]
  - Cough [None]
  - Dyspnoea [None]
